FAERS Safety Report 7089865-5 (Version None)
Quarter: 2010Q4

REPORT INFORMATION
  Report Type: 
  Country: None (occurrence: None)
  Receive Date: 20101108
  Receipt Date: 20101024
  Transmission Date: 20110411
  Serious: Yes (Hospitalization)
  Sender: FDA-Public Use
  Company Number: BR-AMGEN-BRASP2010001054

PATIENT

DRUGS (8)
  1. ENBREL [Suspect]
     Indication: PSORIATIC ARTHROPATHY
     Route: 058
     Dates: start: 20070710
  2. PAROXETINE HCL [Concomitant]
     Indication: DEPRESSION
     Dosage: 20 MG/TABLET HALF TABLET
     Dates: end: 20090213
  3. PAROXETINE HCL [Concomitant]
     Dosage: 20 MG/TABLET HALF TABLET
     Dates: start: 20100701
  4. RISEDRONATE SODIUM [Concomitant]
     Dosage: 35 MG
  5. PAMELOR [Concomitant]
     Indication: DEPRESSION
     Dosage: 75 MG
  6. TYLENOL [Concomitant]
     Indication: PAIN
     Dosage: 75 MG
  7. CYCLOBENZAPRINE HCL [Concomitant]
     Indication: PSORIATIC ARTHROPATHY
     Dosage: 10 MG
  8. CYCLOBENZAPRINE HCL [Concomitant]
     Indication: PAIN

REACTIONS (2)
  - COMA [None]
  - MENINGITIS [None]
